FAERS Safety Report 9826838 (Version 1)
Quarter: 2014Q1

REPORT INFORMATION
  Report Type: Spontaneous
  Country: US (occurrence: US)
  Receive Date: 20140117
  Receipt Date: 20140117
  Transmission Date: 20141002
  Serious: No
  Sender: FDA-Public Use
  Company Number: US-GLAXOSMITHKLINE-A1003255A

PATIENT
  Age: 59 Year
  Sex: Female
  Weight: 82.3 kg

DRUGS (11)
  1. PROMACTA [Suspect]
     Indication: PRODUCT USED FOR UNKNOWN INDICATION
     Dosage: 12.5MG PER DAY
     Route: 048
  2. PEGASYS [Concomitant]
  3. CIPRO [Concomitant]
  4. RIBAVIRIN [Concomitant]
  5. HYDROCHLOROTHIAZIDE [Concomitant]
  6. VITAMIN E [Concomitant]
  7. CALCIUM CITRATE [Concomitant]
  8. VITAMIN D [Concomitant]
  9. MULTIVITAMIN [Concomitant]
  10. TYLENOL [Concomitant]
  11. VITAMIN B COMPLEX 100 [Concomitant]

REACTIONS (1)
  - Haematology test abnormal [Unknown]
